FAERS Safety Report 9853283 (Version 1)
Quarter: 2014Q1

REPORT INFORMATION
  Report Type: Spontaneous
  Country: US (occurrence: US)
  Receive Date: 20140129
  Receipt Date: 20140129
  Transmission Date: 20141002
  Serious: No
  Sender: FDA-Public Use
  Company Number: US-MALLINCKRODT-T201304702

PATIENT
  Age: 36 Year
  Sex: Male
  Weight: 82.99 kg

DRUGS (6)
  1. DEXTROAMPHETAMINE SULFATE [Suspect]
     Indication: ATTENTION DEFICIT/HYPERACTIVITY DISORDER
     Dosage: 3 CAPS IN AM AND 3 CAPS IN PM
     Route: 048
     Dates: start: 20131019
  2. DEXTROAMPHETAMINE SULFATE [Suspect]
     Indication: NARCOLEPSY
  3. PRISTIQ [Concomitant]
     Indication: DEPRESSION
     Dosage: UNK
  4. METFORMIN [Concomitant]
     Indication: DIABETES MELLITUS
     Dosage: UNK
  5. LISINOPRIL [Concomitant]
     Indication: HYPERTENSION
     Dosage: UNK
  6. KLONOPIN [Concomitant]
     Indication: CONVULSION
     Dosage: UNK

REACTIONS (2)
  - Asthenia [Recovered/Resolved]
  - Drug effect decreased [Recovered/Resolved]
